FAERS Safety Report 7213336-6 (Version None)
Quarter: 2011Q1

REPORT INFORMATION
  Report Type: 
  Country: None (occurrence: None)
  Receive Date: 20110106
  Receipt Date: 20110104
  Transmission Date: 20110831
  Serious: Yes (Death)
  Sender: FDA-Public Use
  Company Number: DE-MERCK-1011DEU00133

PATIENT
  Age: 76 Year
  Sex: Male
  Weight: 97 kg

DRUGS (3)
  1. DIGITOXIN [Concomitant]
     Route: 065
  2. PANTOPRAZOLE SODIUM [Concomitant]
     Route: 065
  3. CANCIDAS [Suspect]
     Indication: CANDIDIASIS
     Route: 042
     Dates: start: 20101105, end: 20101124

REACTIONS (3)
  - DRUG INEFFECTIVE [None]
  - MULTI-ORGAN FAILURE [None]
  - SEPTIC SHOCK [None]
